FAERS Safety Report 5905290-1 (Version None)
Quarter: 2008Q4

REPORT INFORMATION
  Report Type: 
  Country: None (occurrence: None)
  Receive Date: 20081001
  Receipt Date: 20080929
  Transmission Date: 20090506
  Serious: Yes (Other)
  Sender: FDA-Public Use
  Company Number: JP-B.I. PHARMACEUTICALS,INC./RIDGEFIELD-2008-BP-13006NB

PATIENT
  Sex: Male
  Weight: 60 kg

DRUGS (2)
  1. MICARDIS [Suspect]
     Indication: HYPERTENSION
     Dosage: 20MG
     Route: 048
     Dates: start: 20070328, end: 20070921
  2. LIVALO [Concomitant]
     Indication: HYPERLIPIDAEMIA
     Dosage: 2MG
     Route: 048
     Dates: start: 20070301

REACTIONS (1)
  - RENAL ARTERY STENOSIS [None]
